FAERS Safety Report 9391008 (Version 1)
Quarter: 2013Q3

REPORT INFORMATION
  Report Type: Spontaneous
  Country: DK (occurrence: FR)
  Receive Date: 20130709
  Receipt Date: 20130709
  Transmission Date: 20140515
  Serious: Yes (Death)
  Sender: FDA-Public Use
  Company Number: FR-FRI-1000046462

PATIENT
  Age: 69 Year
  Sex: Male

DRUGS (11)
  1. ESCITALOPRAM [Suspect]
     Indication: DEPRESSION
     Dosage: 1 DF
     Route: 048
     Dates: start: 20130514, end: 20130528
  2. VIREAD [Suspect]
     Indication: HEPATITIS B
     Dosage: 1 DF
     Route: 048
     Dates: start: 20130508, end: 20130528
  3. ALDACTONE [Suspect]
     Indication: ASCITES
     Dosage: 1 DF
     Route: 048
     Dates: start: 20130507, end: 20130518
  4. NOROXINE [Suspect]
     Indication: PERITONITIS
     Dosage: 1 DF
     Route: 048
     Dates: start: 20130507, end: 20130509
  5. EUPANTOL [Suspect]
     Dosage: 2 DF
     Route: 050
     Dates: start: 20130516, end: 20130606
  6. CEFTRIAXONE PANPHARMA [Suspect]
     Route: 042
     Dates: start: 20130516, end: 20130606
  7. AVLOCARDYL [Concomitant]
     Indication: HEPATITIS B
     Dosage: 2 DF
     Route: 048
     Dates: start: 20130506, end: 20130606
  8. VITAMIN B1 AND B6 [Concomitant]
     Indication: VITAMIN SUPPLEMENTATION
     Dosage: 60 MG/500 MG
     Route: 048
     Dates: start: 20130425, end: 20130606
  9. PHOSPHONEUROS [Concomitant]
     Indication: MALNUTRITION
     Dosage: 150 DF
     Dates: start: 20130425, end: 20130606
  10. LOVENOX [Concomitant]
     Indication: THROMBOSIS PROPHYLAXIS
     Dosage: 40000 IU
     Route: 058
     Dates: start: 20130425, end: 20130606
  11. MAG 2 [Concomitant]
     Dosage: 2 DF
     Route: 048
     Dates: start: 20130425, end: 20130606

REACTIONS (1)
  - Prothrombin time ratio decreased [Fatal]
